FAERS Safety Report 8277322-X (Version None)
Quarter: 2012Q2

REPORT INFORMATION
  Report Type: 
  Country: None (occurrence: None)
  Receive Date: 20120412
  Receipt Date: 20120330
  Transmission Date: 20120825
  Serious: Yes (Hospitalization)
  Sender: FDA-Public Use
  Company Number: JP-GLAXOSMITHKLINE-B0792952A

PATIENT
  Age: 68 Year
  Sex: Female

DRUGS (10)
  1. LEVOTHYROXINE SODIUM [Concomitant]
     Route: 048
  2. LAMICTAL [Suspect]
     Indication: BIPOLAR DISORDER
     Dosage: 200MG PER DAY
     Route: 048
     Dates: end: 20120330
  3. SEROQUEL [Suspect]
     Route: 048
     Dates: start: 20120301, end: 20120301
  4. CYMBALTA [Concomitant]
     Route: 048
     Dates: end: 20120301
  5. SEROQUEL [Suspect]
     Route: 048
     Dates: start: 20120301
  6. MIRTAZAPINE [Concomitant]
     Route: 048
     Dates: end: 20120301
  7. SEROQUEL [Suspect]
     Indication: PRODUCT USED FOR UNKNOWN INDICATION
     Route: 048
     Dates: start: 20120312, end: 20120301
  8. ZYPREXA [Suspect]
     Route: 048
     Dates: start: 20120301
  9. ZYPREXA [Suspect]
     Indication: PRODUCT USED FOR UNKNOWN INDICATION
     Route: 048
     Dates: end: 20120301
  10. MIRTAZAPINE [Concomitant]
     Route: 048
     Dates: start: 20120301

REACTIONS (1)
  - PARKINSONISM [None]
